FAERS Safety Report 8424207-1 (Version None)
Quarter: 2012Q2

REPORT INFORMATION
  Report Type: 
  Country: None (occurrence: None)
  Receive Date: 20120608
  Receipt Date: 20120120
  Transmission Date: 20120825
  Serious: No
  Sender: FDA-Public Use
  Company Number: US-ASTRAZENECA-2012SE04394

PATIENT
  Age: 7 Year
  Sex: Male
  Weight: 28.6 kg

DRUGS (1)
  1. PULMICORT FLEXHALER [Suspect]
     Route: 055

REACTIONS (4)
  - ANGER [None]
  - DYSPHEMIA [None]
  - ANXIETY [None]
  - ABNORMAL BEHAVIOUR [None]
